FAERS Safety Report 17490821 (Version 2)
Quarter: 2020Q1

REPORT INFORMATION
  Report Type: Spontaneous
  Country: US (occurrence: US)
  Receive Date: 20200303
  Receipt Date: 20200304
  Transmission Date: 20200409
  Serious: Yes (Other)
  Sender: FDA-Public Use
  Company Number: US-CELGENEUS-USA-20200209984

PATIENT
  Sex: Male
  Weight: 77.18 kg

DRUGS (2)
  1. REVLIMID [Suspect]
     Active Substance: LENALIDOMIDE
     Indication: B-CELL LYMPHOMA
     Dosage: 20 MILLIGRAM
     Route: 048
     Dates: start: 20190925
  2. REVLIMID [Suspect]
     Active Substance: LENALIDOMIDE
     Indication: MANTLE CELL LYMPHOMA

REACTIONS (2)
  - Dermal cyst [Recovering/Resolving]
  - Headache [Not Recovered/Not Resolved]

NARRATIVE: CASE EVENT DATE: 2019
